FAERS Safety Report 22597979 (Version 1)
Quarter: 2023Q2

REPORT INFORMATION
  Report Type: Report from Study
  Country: US (occurrence: US)
  Receive Date: 20230614
  Receipt Date: 20230614
  Transmission Date: 20230721
  Serious: Yes (Life-Threatening, Hospitalization)
  Sender: FDA-Public Use
  Company Number: US-JNJFOC-20230620746

PATIENT
  Age: 64 Year
  Sex: Female
  Weight: 53.8 kg

DRUGS (3)
  1. DARATUMUMAB [Suspect]
     Active Substance: DARATUMUMAB
     Indication: Plasma cell myeloma refractory
     Route: 042
  2. POMALIDOMIDE [Suspect]
     Active Substance: POMALIDOMIDE
     Indication: Plasma cell myeloma refractory
     Route: 048
     Dates: start: 20230125
  3. IXAZOMIB [Concomitant]
     Active Substance: IXAZOMIB
     Indication: Plasma cell myeloma refractory
     Route: 048
     Dates: start: 20230125

REACTIONS (9)
  - Sepsis [Unknown]
  - Pneumonia [Unknown]
  - Pulmonary mass [Unknown]
  - Pneumonia aspiration [Unknown]
  - Acute respiratory failure [Unknown]
  - Neutropenia [Unknown]
  - Pancytopenia [Unknown]
  - Hyponatraemia [Unknown]
  - Hypokalaemia [Unknown]

NARRATIVE: CASE EVENT DATE: 20230310
